FAERS Safety Report 16526842 (Version 3)
Quarter: 2020Q4

REPORT INFORMATION
  Report Type: Report from Study
  Country: US (occurrence: US)
  Receive Date: 20190703
  Receipt Date: 20201013
  Transmission Date: 20210113
  Serious: Yes (Hospitalization, Other)
  Sender: FDA-Public Use
  Company Number: US-GILEAD-2019-0415341

PATIENT
  Age: 48 Year
  Sex: Male
  Weight: 78.2 kg

DRUGS (18)
  1. CYCLOPHOSPHAMIDE. [Suspect]
     Active Substance: CYCLOPHOSPHAMIDE
     Dosage: 500
     Route: 042
     Dates: start: 20180413, end: 20180413
  2. G-CSF [Concomitant]
     Active Substance: GRANULOCYTE COLONY-STIMULATING FACTOR NOS
     Dosage: UNK
     Dates: start: 202008
  3. AXICABTAGENE CILOLEUCEL [Suspect]
     Active Substance: AXICABTAGENE CILOLEUCEL
     Indication: DIFFUSE LARGE B-CELL LYMPHOMA
     Dosage: UNK
     Route: 042
     Dates: start: 20180417, end: 20180417
  4. FLUDARABINE [Suspect]
     Active Substance: FLUDARABINE PHOSPHATE
     Dosage: 30
     Route: 042
     Dates: start: 20180413, end: 20180413
  5. MESNA. [Suspect]
     Active Substance: MESNA
     Dosage: 125
     Route: 042
     Dates: start: 20180414, end: 20180414
  6. ALLOPURINOL. [Concomitant]
     Active Substance: ALLOPURINOL
     Dosage: 100,MG,DAILY
     Route: 048
     Dates: start: 20180509
  7. CYCLOPHOSPHAMIDE. [Suspect]
     Active Substance: CYCLOPHOSPHAMIDE
     Dosage: 500
     Route: 042
     Dates: start: 20180414, end: 20180414
  8. LEVETIRACETAM. [Concomitant]
     Active Substance: LEVETIRACETAM
     Dosage: 750,MG,DAILY
     Route: 048
     Dates: start: 20180422
  9. ATOVAQUONE. [Concomitant]
     Active Substance: ATOVAQUONE
     Dosage: 5,ML,TWICE DAILY
     Route: 048
     Dates: start: 20180425
  10. CYCLOPHOSPHAMIDE. [Suspect]
     Active Substance: CYCLOPHOSPHAMIDE
     Indication: BONE MARROW CONDITIONING REGIMEN
     Dosage: 500
     Route: 042
     Dates: start: 20180412, end: 20180412
  11. FLUDARABINE [Suspect]
     Active Substance: FLUDARABINE PHOSPHATE
     Indication: BONE MARROW CONDITIONING REGIMEN
     Dosage: 30
     Route: 042
     Dates: start: 20180412, end: 20180412
  12. FLUDARABINE [Suspect]
     Active Substance: FLUDARABINE PHOSPHATE
     Dosage: 30
     Route: 042
     Dates: start: 20180414, end: 20180414
  13. PREDNISONE. [Concomitant]
     Active Substance: PREDNISONE
     Dosage: 5,MG,DAILY
     Route: 048
     Dates: start: 20180417
  14. ACYCLOVIR [ACICLOVIR] [Concomitant]
     Active Substance: ACYCLOVIR
     Dosage: 400,MG,DAILY
     Route: 048
     Dates: start: 20180422
  15. MESNA. [Suspect]
     Active Substance: MESNA
     Dosage: 125
     Route: 042
     Dates: start: 20180413, end: 20180413
  16. IMMUNOGLOBULIN I.V [Concomitant]
     Active Substance: HUMAN IMMUNOGLOBULIN G
     Dosage: 30, G, DAILY
     Route: 041
     Dates: start: 20200903, end: 20200903
  17. PROCHLORPERAZINE. [Concomitant]
     Active Substance: PROCHLORPERAZINE
     Dosage: 10,MG,AS NECESSARY
     Route: 048
     Dates: start: 20180412
  18. MESNA. [Suspect]
     Active Substance: MESNA
     Indication: PROPHYLAXIS
     Dosage: 125
     Route: 042
     Dates: start: 20180412, end: 20180412

REACTIONS (2)
  - Pneumonia [Recovered/Resolved]
  - Myelodysplastic syndrome [Not Recovered/Not Resolved]

NARRATIVE: CASE EVENT DATE: 20190624
